FAERS Safety Report 18139934 (Version 1)
Quarter: 2020Q3

REPORT INFORMATION
  Report Type: Spontaneous
  Country: US (occurrence: US)
  Receive Date: 20200812
  Receipt Date: 20200812
  Transmission Date: 20201103
  Serious: Yes (Hospitalization)
  Sender: FDA-Public Use
  Company Number: None

PATIENT
  Age: 74 Year
  Sex: Male

DRUGS (1)
  1. LISINOPRIL (LISINOPRIL 10MG TAB) [Suspect]
     Active Substance: LISINOPRIL
     Indication: MICROALBUMINURIA
     Route: 048
     Dates: start: 20200213, end: 20200224

REACTIONS (2)
  - Upper airway obstruction [None]
  - Drug hypersensitivity [None]

NARRATIVE: CASE EVENT DATE: 20200224
